FAERS Safety Report 7094459-1 (Version None)
Quarter: 2010Q4

REPORT INFORMATION
  Report Type: 
  Country: None (occurrence: None)
  Receive Date: 20101102
  Receipt Date: 20101020
  Transmission Date: 20110411
  Serious: Yes (Hospitalization)
  Sender: FDA-Public Use
  Company Number: 2010-3190

PATIENT
  Sex: Female

DRUGS (6)
  1. APO-GO AMPOULES (APO-GO) (APOMORPHINE HYDROCHLORIDE) (APOMORPHINE HYDR [Suspect]
     Indication: PARKINSONISM
     Dosage: 120 MG (5 MG, 1 IN 1 HR), SUBCUTANEOUS
     Route: 058
     Dates: start: 20100906, end: 20100909
  2. ISICOM 100 (SINEMET) [Concomitant]
  3. AMANTADINE HCL [Concomitant]
  4. TASMAR [Concomitant]
  5. EXELON [Concomitant]
  6. SEROQUEL [Concomitant]

REACTIONS (3)
  - ABDOMINAL WALL HAEMATOMA [None]
  - HAEMOGLOBIN DECREASED [None]
  - INJECTION SITE HAEMATOMA [None]
